FAERS Safety Report 12273235 (Version 1)
Quarter: 2016Q2

REPORT INFORMATION
  Report Type: Spontaneous
  Country: US (occurrence: US)
  Receive Date: 20160415
  Receipt Date: 20160415
  Transmission Date: 20160815
  Serious: No
  Sender: FDA-Public Use
  Company Number: US-ROCHE-1085135

PATIENT
  Sex: Female
  Weight: 118.04 kg

DRUGS (5)
  1. RIBAVIRIN. [Suspect]
     Active Substance: RIBAVIRIN
     Indication: CHRONIC HEPATITIS C
     Dosage: 12 WEEKS LENGTH OF TREATMENT
     Route: 048
     Dates: start: 20120705
  2. ZANTAC [Concomitant]
     Active Substance: RANITIDINE HYDROCHLORIDE
  3. ZYRTEC [Concomitant]
     Active Substance: CETIRIZINE HYDROCHLORIDE
  4. TELAPREVIR [Suspect]
     Active Substance: TELAPREVIR
     Indication: CHRONIC HEPATITIS C
     Dosage: ONE FOR 12 WEEKS LENGTH OF TREATMENT
     Route: 065
     Dates: start: 20120705
  5. PEGASYS [Suspect]
     Active Substance: PEGINTERFERON ALFA-2A
     Indication: CHRONIC HEPATITIS C
     Dosage: 12 WEEKS LENGTH OF TREATMENT
     Route: 058
     Dates: start: 20120705

REACTIONS (10)
  - Vision blurred [Unknown]
  - Hypersensitivity [Not Recovered/Not Resolved]
  - Chromaturia [Unknown]
  - Weight increased [Unknown]
  - Blood glucose increased [Unknown]
  - Injection site erythema [Not Recovered/Not Resolved]
  - Flatulence [Unknown]
  - Rash [Unknown]
  - Herpes virus infection [Unknown]
  - Irritability [Unknown]
